FAERS Safety Report 11122353 (Version 1)
Quarter: 2015Q2

REPORT INFORMATION
  Report Type: Spontaneous
  Country: US (occurrence: None)
  Receive Date: 20150518
  Receipt Date: 20150518
  Transmission Date: 20150821
  Serious: Yes (Hospitalization, Other)
  Sender: FDA-Public Use
  Company Number: None

PATIENT
  Age: 50 Year
  Sex: Male
  Weight: 92.3 kg

DRUGS (2)
  1. EXJADE [Suspect]
     Active Substance: DEFERASIROX
     Indication: IRON OVERLOAD
     Dosage: 250MG EXJADE ONE TAB QD PO
     Route: 048
     Dates: start: 20140924
  2. EXJADE [Suspect]
     Active Substance: DEFERASIROX
     Dosage: 500MG EXJADE TWO TABS QD PO
     Route: 048
     Dates: start: 20150514

REACTIONS (2)
  - Colitis [None]
  - Nephrolithiasis [None]

NARRATIVE: CASE EVENT DATE: 20150422
